FAERS Safety Report 6626267-7 (Version None)
Quarter: 2010Q1

REPORT INFORMATION
  Report Type: 
  Country: None (occurrence: None)
  Receive Date: 20100309
  Receipt Date: 20100309
  Transmission Date: 20100710
  Serious: Yes (Hospitalization)
  Sender: FDA-Public Use
  Company Number: None

PATIENT
  Age: 74 Year
  Sex: Female
  Weight: 75.2971 kg

DRUGS (1)
  1. COUMADIN [Suspect]
     Indication: THROMBOSIS
     Dosage: 1 TAB DAILY PO
     Route: 048
     Dates: start: 20090726, end: 20091223

REACTIONS (3)
  - CONTUSION [None]
  - HYPOAESTHESIA [None]
  - OEDEMA PERIPHERAL [None]
